FAERS Safety Report 14659546 (Version 1)
Quarter: 2018Q1

REPORT INFORMATION
  Report Type: Spontaneous
  Country: GR (occurrence: GR)
  Receive Date: 20180320
  Receipt Date: 20180320
  Transmission Date: 20180509
  Serious: Yes (Other)
  Sender: FDA-Public Use
  Company Number: GR-HERITAGE PHARMACEUTICALS-2018HTG00049

PATIENT
  Age: 14 Year
  Sex: Female

DRUGS (1)
  1. ACYCLOVIR. [Suspect]
     Active Substance: ACYCLOVIR
     Indication: MENINGOENCEPHALITIS HERPETIC
     Dosage: 30 MG/KG/24 H IN THREE DIVIDED DOSES
     Route: 042

REACTIONS (2)
  - Skin necrosis [Recovered/Resolved]
  - Extravasation [Recovered/Resolved]
